FAERS Safety Report 25613845 (Version 1)
Quarter: 2025Q3

REPORT INFORMATION
  Report Type: Spontaneous
  Country: AU (occurrence: AU)
  Receive Date: 20250728
  Receipt Date: 20250728
  Transmission Date: 20251021
  Serious: Yes (Hospitalization)
  Sender: ELI LILLY AND COMPANY
  Company Number: AU-ELI_LILLY_AND_COMPANY-AU202507013280

PATIENT
  Sex: Female

DRUGS (7)
  1. MOUNJARO [Suspect]
     Active Substance: TIRZEPATIDE
     Indication: Product used for unknown indication
     Route: 065
     Dates: start: 2024
  2. MOUNJARO [Suspect]
     Active Substance: TIRZEPATIDE
     Indication: Product used for unknown indication
     Route: 065
     Dates: start: 2025
  3. MOUNJARO [Suspect]
     Active Substance: TIRZEPATIDE
     Route: 065
  4. MOUNJARO [Suspect]
     Active Substance: TIRZEPATIDE
     Route: 065
  5. MOUNJARO [Suspect]
     Active Substance: TIRZEPATIDE
     Indication: Product used for unknown indication
     Route: 065
  6. MOUNJARO [Suspect]
     Active Substance: TIRZEPATIDE
     Indication: Product used for unknown indication
     Route: 065
  7. MOUNJARO [Suspect]
     Active Substance: TIRZEPATIDE
     Indication: Product used for unknown indication
     Route: 065

REACTIONS (8)
  - Vomiting projectile [Unknown]
  - Diarrhoea [Not Recovered/Not Resolved]
  - Flatulence [Unknown]
  - Eructation [Unknown]
  - Dehydration [Unknown]
  - Burning sensation [Unknown]
  - Extra dose administered [Unknown]
  - Intentional device misuse [Unknown]
